FAERS Safety Report 7914841-7 (Version None)
Quarter: 2011Q4

REPORT INFORMATION
  Report Type: 
  Country: None (occurrence: None)
  Receive Date: 20111115
  Receipt Date: 20111107
  Transmission Date: 20120403
  Serious: Yes (Other)
  Sender: FDA-Public Use
  Company Number: IT-ELI_LILLY_AND_COMPANY-IT201111002999

PATIENT

DRUGS (4)
  1. ANTIEMETICS AND ANTINAUSEANTS [Concomitant]
     Indication: PROPHYLAXIS
  2. DEXAMETHASONE [Concomitant]
     Indication: FLUID RETENTION
     Dosage: 8 MG, 12 BEFORE AND AFTER THE NIGHT BEFORE, MORNING OF AND EVENING AFTER TREATMENT
     Route: 048
  3. DOCETAXEL [Concomitant]
     Indication: BREAST CANCER
     Dosage: 75 MG/M2, 60 MINUTE INFUSION
  4. GEMCITABINE HYDROCHLORIDE [Suspect]
     Indication: BREAST CANCER
     Dosage: 1250 MG/M2, 30-MINUTE INTRAVENOUSLY ON DAYS ONE AND FIFTEEN

REACTIONS (1)
  - PALMAR-PLANTAR ERYTHRODYSAESTHESIA SYNDROME [None]
